FAERS Safety Report 4596861-6 (Version None)
Quarter: 2005Q1

REPORT INFORMATION
  Report Type: 
  Country: None (occurrence: None)
  Receive Date: 20050228
  Receipt Date: 20050211
  Transmission Date: 20050727
  Serious: Yes (Other)
  Sender: FDA-Public Use
  Company Number: 2005022705

PATIENT
  Sex: Female
  Weight: 97.5234 kg

DRUGS (10)
  1. DETROL LA [Suspect]
     Indication: HYPERTONIC BLADDER
     Dosage: 2 MG (2 MG, DAILY), ORAL
     Route: 048
  2. CELEBREX [Suspect]
     Indication: ARTHRITIS
     Dosage: 400 MG (200 MG, BID), ORAL
     Route: 048
     Dates: end: 20041201
  3. ATORVASTATIN CALCIUM [Concomitant]
  4. AMLODIPINE BESYLATE [Concomitant]
  5. NAPROXEN [Concomitant]
  6. ESTRADIOL [Concomitant]
  7. ASPIRIN [Concomitant]
  8. CALCITONIN, SALMON (CALCITONIN, SALMON) [Concomitant]
  9. CACLIUM (CALCIUM) [Concomitant]
  10. ZALEPLON (ZALEPLON) [Concomitant]

REACTIONS (3)
  - ARTHRALGIA [None]
  - COLLAPSE OF LUNG [None]
  - DRUG INEFFECTIVE [None]
